FAERS Safety Report 7423038-9 (Version None)
Quarter: 2011Q2

REPORT INFORMATION
  Report Type: 
  Country: None (occurrence: None)
  Receive Date: 20110419
  Receipt Date: 20110405
  Transmission Date: 20111010
  Serious: Yes (Death)
  Sender: FDA-Public Use
  Company Number: IT-CELGENEUS-083-50794-11020956

PATIENT
  Sex: Female

DRUGS (16)
  1. PREFOLIC [Concomitant]
     Route: 048
     Dates: start: 20110111
  2. KLACID [Concomitant]
     Route: 048
     Dates: start: 20110114
  3. HUMALOG [Concomitant]
     Route: 058
  4. VIDAZA [Suspect]
     Dosage: 100 MILLIGRAM
     Route: 058
     Dates: start: 20110128, end: 20110202
  5. IG VENA [Concomitant]
     Route: 051
     Dates: start: 20110128, end: 20110202
  6. URBASON [Concomitant]
     Route: 051
  7. PANTOPRAZOLE [Concomitant]
     Dosage: 40 MILLIGRAM
     Route: 048
  8. TAREG [Concomitant]
     Dosage: 160 MILLIGRAM
     Route: 048
  9. LEVOPRAID [Concomitant]
     Route: 048
  10. LANTUS [Concomitant]
     Route: 058
  11. ANTRA [Concomitant]
     Dosage: 200 MILLIGRAM
     Route: 051
     Dates: start: 20110201
  12. DOBETIN [Concomitant]
     Route: 030
     Dates: start: 20110111
  13. GABAPENTIN [Concomitant]
     Dosage: 600 MILLIGRAM
     Route: 048
  14. BINOCRIPT [Concomitant]
     Route: 065
     Dates: start: 20101201
  15. ROCEPHIN [Concomitant]
     Route: 051
  16. LEVOPRAID [Concomitant]
     Dosage: 45 DROPS
     Route: 048

REACTIONS (2)
  - GASTROINTESTINAL HAEMORRHAGE [None]
  - THROMBOCYTOPENIA [None]
